FAERS Safety Report 4614722-0 (Version None)
Quarter: 2005Q2

REPORT INFORMATION
  Report Type: 
  Country: None (occurrence: None)
  Receive Date: 20050310
  Receipt Date: 20050118
  Transmission Date: 20051028
  Serious: Yes (Hospitalization)
  Sender: FDA-Public Use
  Company Number: A03200500175

PATIENT
  Sex: Female

DRUGS (3)
  1. ELOXATIN [Suspect]
     Indication: NEOPLASM MALIGNANT
     Dosage: INTRAVENOUS NOS
     Route: 042
  2. DOLASETRON MESILATE [Concomitant]
  3. METHYLPREDNISOLONE SODIUM SUCCINATE [Concomitant]

REACTIONS (3)
  - DIARRHOEA [None]
  - INJECTION SITE IRRITATION [None]
  - VOMITING [None]
